FAERS Safety Report 8470965-X (Version None)
Quarter: 2012Q2

REPORT INFORMATION
  Report Type: 
  Country: None (occurrence: None)
  Receive Date: 20120627
  Receipt Date: 20120613
  Transmission Date: 20120825
  Serious: Yes (Other)
  Sender: FDA-Public Use
  Company Number: CH-TEVA-345200ISR

PATIENT
  Age: 62 Year
  Sex: Female

DRUGS (3)
  1. COPAXONE [Suspect]
     Indication: MULTIPLE SCLEROSIS
     Dosage: 20 MILLIGRAM;
     Route: 058
     Dates: start: 20120423, end: 20120425
  2. ATACAND [Concomitant]
     Dosage: 4 MILLIGRAM;
     Route: 048
  3. ALLOPUR [Concomitant]
     Dosage: 100 MILLIGRAM;
     Route: 048

REACTIONS (8)
  - INSOMNIA [None]
  - DRUG HYPERSENSITIVITY [None]
  - COUGH [None]
  - NERVOUSNESS [None]
  - DYSPHAGIA [None]
  - DIARRHOEA [None]
  - PAIN IN EXTREMITY [None]
  - THROAT TIGHTNESS [None]
